FAERS Safety Report 11747018 (Version 1)
Quarter: 2015Q4

REPORT INFORMATION
  Report Type: Spontaneous
  Country: US (occurrence: US)
  Receive Date: 20151117
  Receipt Date: 20151117
  Transmission Date: 20160304
  Serious: No
  Sender: FDA-Public Use
  Company Number: US-WATSON-2015-14176

PATIENT
  Sex: Female

DRUGS (1)
  1. ALPRAZOLAM (AELLC) [Suspect]
     Active Substance: ALPRAZOLAM
     Indication: PRODUCT USED FOR UNKNOWN INDICATION
     Dosage: UNK, UNKNOWN
     Route: 048
     Dates: start: 2008

REACTIONS (2)
  - Amnesia [None]
  - Drug ineffective [Unknown]
